FAERS Safety Report 19386236 (Version 1)
Quarter: 2021Q2

REPORT INFORMATION
  Report Type: Spontaneous
  Country: US (occurrence: US)
  Receive Date: 20210605
  Receipt Date: 20210605
  Transmission Date: 20210717
  Serious: Yes (Other)
  Sender: FDA-Public Use
  Company Number: None

PATIENT
  Age: 28 Year
  Sex: Female
  Weight: 50.4 kg

DRUGS (3)
  1. SPIRONOLACTONE 75 MG DAILY [Concomitant]
  2. TERBINAFINE. [Suspect]
     Active Substance: TERBINAFINE
     Indication: ONYCHOMYCOSIS
     Dosage: ?          QUANTITY:1 TABLET(S);?
     Route: 048
     Dates: start: 20210512, end: 20210603
  3. KYLEENA [Suspect]
     Active Substance: LEVONORGESTREL

REACTIONS (10)
  - Depression [None]
  - Fatigue [None]
  - Decreased appetite [None]
  - Mood altered [None]
  - Mental disorder [None]
  - Restlessness [None]
  - Discomfort [None]
  - Stress [None]
  - Quality of life decreased [None]
  - Anxiety [None]

NARRATIVE: CASE EVENT DATE: 20210602
